FAERS Safety Report 9129928 (Version 1)
Quarter: 2013Q1

REPORT INFORMATION
  Report Type: Spontaneous
  Country: US (occurrence: US)
  Receive Date: 20130228
  Receipt Date: 20130228
  Transmission Date: 20140127
  Serious: Yes (Other)
  Sender: FDA-Public Use
  Company Number: US-UCBSA-079088

PATIENT
  Sex: 0

DRUGS (2)
  1. VIMPAT [Suspect]
  2. VIMPAT [Suspect]

REACTIONS (1)
  - Drug reaction with eosinophilia and systemic symptoms [Unknown]
